FAERS Safety Report 4388570-3 (Version None)
Quarter: 2004Q2

REPORT INFORMATION
  Report Type: 
  Country: None (occurrence: None)
  Receive Date: 20040624
  Receipt Date: 20040611
  Transmission Date: 20050107
  Serious: Yes (Hospitalization, Other)
  Sender: FDA-Public Use
  Company Number: 2003-01614

PATIENT
  Age: 50 Year
  Sex: Female

DRUGS (2)
  1. INACTIVATED HUMAN RABIES VACCINE MERIEUX (RABIES (HDC) VACCINE - F) [Suspect]
     Indication: ACCIDENTAL EXPOSURE
     Dosage: 1.0 ML
     Route: 030
     Dates: start: 20030812
  2. IMOGAN RABIES PASTEURIZED (PASTEURIZED HUMAN RABIES IMMUNOGLOBULIN) [Suspect]
     Indication: ANIMAL BITE
     Dosage: 10.0 MG
     Dates: start: 20030812

REACTIONS (2)
  - CONVULSION [None]
  - INJECTION SITE INFLAMMATION [None]
